FAERS Safety Report 6567167-0 (Version None)
Quarter: 2010Q1

REPORT INFORMATION
  Report Type: 
  Country: None (occurrence: None)
  Receive Date: 20100202
  Receipt Date: 20100121
  Transmission Date: 20100710
  Serious: Yes (Hospitalization, Other)
  Sender: FDA-Public Use
  Company Number: JP-PFIZER INC-2010005918

PATIENT
  Age: 49 Year
  Sex: Female
  Weight: 53.4 kg

DRUGS (5)
  1. SOLU-MEDROL [Suspect]
  2. MYCOPHENOLATE MOFETIL [Suspect]
  3. TACROLIMUS [Suspect]
  4. PENTAMIDINE [Suspect]
  5. BACTRAMIN [Concomitant]

REACTIONS (11)
  - BLOOD AMYLASE INCREASED [None]
  - BLOOD PRESSURE INCREASED [None]
  - CYTOMEGALOVIRUS INFECTION [None]
  - DIABETIC KETOACIDOSIS [None]
  - DYSPNOEA [None]
  - KIDNEY TRANSPLANT REJECTION [None]
  - LIPASE INCREASED [None]
  - NASOPHARYNGITIS [None]
  - NORMOCHROMIC NORMOCYTIC ANAEMIA [None]
  - PNEUMOCYSTIS JIROVECI PNEUMONIA [None]
  - TYPE 1 DIABETES MELLITUS [None]
